FAERS Safety Report 21657403 (Version 1)
Quarter: 2022Q4

REPORT INFORMATION
  Report Type: Spontaneous
  Country: BE (occurrence: BE)
  Receive Date: 20221129
  Receipt Date: 20221129
  Transmission Date: 20230112
  Serious: Yes (Life-Threatening, Other)
  Sender: FDA-Public Use
  Company Number: None

PATIENT

DRUGS (2)
  1. IBUPROFEN [Suspect]
     Active Substance: IBUPROFEN
     Indication: Arthralgia
     Dosage: LEFT SHOULDER PAIN FOR 3 DAYS, TOOK IBUPROFEN, AND ON NOV 27, 2021 DICLOFENAC
     Route: 048
  2. DICLOFENAC [Suspect]
     Active Substance: DICLOFENAC
     Indication: Arthralgia
     Dosage: LEFT SHOULDER PAIN FOR 3 DAYS, TOOK IBUPROFEN, AND ON NOV 27, 2021 DICLOFENAC
     Route: 048

REACTIONS (1)
  - Cardiac arrest [Recovering/Resolving]

NARRATIVE: CASE EVENT DATE: 20211127
